FAERS Safety Report 11235347 (Version 1)
Quarter: 2015Q3

REPORT INFORMATION
  Report Type: Spontaneous
  Country: US (occurrence: US)
  Receive Date: 20150702
  Receipt Date: 20150702
  Transmission Date: 20151125
  Serious: No
  Sender: FDA-Public Use
  Company Number: US-MALLINCKRODT-T201501160

PATIENT
  Age: 35 Year
  Sex: Male

DRUGS (1)
  1. OFIRMEV [Suspect]
     Active Substance: ACETAMINOPHEN
     Indication: PROCEDURAL PAIN
     Dosage: RECEIVED THREE DOSES
     Route: 042
     Dates: end: 20150206

REACTIONS (1)
  - Injection site extravasation [Unknown]

NARRATIVE: CASE EVENT DATE: 20150206
